FAERS Safety Report 8201111-5 (Version None)
Quarter: 2012Q1

REPORT INFORMATION
  Report Type: 
  Country: None (occurrence: None)
  Receive Date: 20120312
  Receipt Date: 20120301
  Transmission Date: 20120608
  Serious: Yes (Other)
  Sender: FDA-Public Use
  Company Number: US-JNJFOC-20111008617

PATIENT
  Sex: Female
  Weight: 77.11 kg

DRUGS (5)
  1. GLIPIZIDE [Concomitant]
     Indication: DIABETES MELLITUS
     Route: 048
     Dates: start: 20080101
  2. DOXORUBICIN HCL [Suspect]
     Route: 042
  3. DOXORUBICIN HCL [Suspect]
     Route: 042
     Dates: start: 20110501
  4. DOXORUBICIN HCL [Suspect]
     Indication: BREAST CANCER STAGE IV
     Route: 042
  5. DOXORUBICIN HCL [Suspect]
     Route: 042
     Dates: start: 20120201

REACTIONS (3)
  - PAIN [None]
  - BONE NEOPLASM MALIGNANT [None]
  - BREAST CANCER RECURRENT [None]
